FAERS Safety Report 20986337 (Version 1)
Quarter: 2022Q2

REPORT INFORMATION
  Report Type: Spontaneous
  Country: US (occurrence: US)
  Receive Date: 20220621
  Receipt Date: 20220621
  Transmission Date: 20220720
  Serious: Yes (Hospitalization)
  Sender: FDA-Public Use
  Company Number: US-ENDO PHARMACEUTICALS INC-2022-003607

PATIENT
  Age: 53 Year
  Sex: Female

DRUGS (16)
  1. BACLOFEN [Suspect]
     Active Substance: BACLOFEN
     Indication: Product used for unknown indication
     Dosage: 20 MG, TID VIA OROGASTRIC TUBE (DAY 4 OF HOSPITALIZATION)
  2. BACLOFEN [Suspect]
     Active Substance: BACLOFEN
     Dosage: 40 MG, QID (HIGH DOSE) (HOME MEDICATION DOSAGE)
     Route: 048
  3. BACLOFEN [Suspect]
     Active Substance: BACLOFEN
     Dosage: 40 MG, QID (IN ICU) (VIA OROGASTRIC TUBE) (HIGH DOSE)
  4. BACLOFEN [Suspect]
     Active Substance: BACLOFEN
     Dosage: 40 MG, TID
     Route: 065
  5. AMITRIPTYLINE [Concomitant]
     Active Substance: AMITRIPTYLINE
     Indication: Product used for unknown indication
     Dosage: 100 MG, DAILY (VIA OROGASTRIC TUBE)
  6. AMITRIPTYLINE [Concomitant]
     Active Substance: AMITRIPTYLINE
     Dosage: 100 MG, DAILY (HOME MEDICATION)
     Route: 065
  7. PREGABALIN [Concomitant]
     Active Substance: PREGABALIN
     Indication: Product used for unknown indication
     Dosage: 300 MG, TID (VIA OROGASTRIC TUBE)
  8. PREGABALIN [Concomitant]
     Active Substance: PREGABALIN
     Dosage: 300 MG, TID (HOME MEDICATION)
     Route: 065
  9. PROPOFOL [Concomitant]
     Active Substance: PROPOFOL
     Indication: Sedation
     Dosage: UNK UNKNOWN, UNKNOWN
     Route: 041
  10. PROPOFOL [Concomitant]
     Active Substance: PROPOFOL
     Indication: Pain prophylaxis
  11. FENTANYL [Concomitant]
     Active Substance: FENTANYL
     Indication: Sedation
     Dosage: UNK UNKNOWN, PRN (PUSHES AS NEEDED)
     Route: 042
  12. FENTANYL [Concomitant]
     Active Substance: FENTANYL
     Indication: Pain prophylaxis
  13. VANCOMYCIN [Concomitant]
     Active Substance: VANCOMYCIN
     Indication: Evidence based treatment
     Dosage: UNK UNKNOWN, UNKNOWN
     Route: 065
  14. METRONIDAZOLE [Concomitant]
     Active Substance: METRONIDAZOLE
     Indication: Evidence based treatment
     Dosage: UNK UNKNOWN, UNKNOWN
     Route: 065
  15. CEFEPIME [Concomitant]
     Active Substance: CEFEPIME HYDROCHLORIDE
     Indication: Evidence based treatment
     Dosage: UNK UNKNOWN, UNKNOWN
     Route: 065
  16. NOREPINEPHRINE                     /00127502/ [Concomitant]
     Indication: Vasopressive therapy
     Dosage: UNKNOWN (0.4-0.6 ?G/KG/MIN)
     Route: 041

REACTIONS (4)
  - Hyperthermia [Recovered/Resolved]
  - Drug withdrawal syndrome [Recovered/Resolved]
  - Somnolence [Recovered/Resolved]
  - Off label use [Not Recovered/Not Resolved]
